FAERS Safety Report 9816070 (Version 2)
Quarter: 2014Q1

REPORT INFORMATION
  Report Type: Report from Study
  Country: CA (occurrence: CA)
  Receive Date: 20140114
  Receipt Date: 20140117
  Transmission Date: 20141002
  Serious: Yes (Death)
  Sender: FDA-Public Use
  Company Number: PHHY2014CA003334

PATIENT
  Age: 79 Year
  Sex: Male

DRUGS (12)
  1. CLOZARIL [Suspect]
     Indication: SCHIZOPHRENIA
     Dosage: UNK UKN, UNK
     Dates: start: 20130405
  2. CLOZARIL [Suspect]
     Indication: PARKINSON^S DISEASE
     Dosage: 31.25 MG, UNK
     Route: 048
  3. CLOZARIL [Suspect]
     Indication: PSYCHOTIC DISORDER
  4. SINEMET [Concomitant]
     Dosage: UNK UKN, UNK
  5. COMTAN [Concomitant]
     Dosage: UNK UKN, UNK
  6. FLORINEFE [Concomitant]
     Dosage: UNK UKN, UNK
  7. MIDODRINE [Concomitant]
     Dosage: UNK UKN, UNK
  8. EXELON [Concomitant]
     Dosage: UNK UKN, UNK
  9. MOXIFLOXACIN [Concomitant]
     Dosage: UNK UKN, UNK
  10. RIFAMPICIN [Concomitant]
     Dosage: UNK UKN, UNK
  11. VITAMIN E [Concomitant]
     Dosage: UNK UKN, UNK
  12. CLONAZEPAM [Concomitant]
     Dosage: UNK UKN, UNK

REACTIONS (1)
  - Sudden death [Fatal]
